FAERS Safety Report 9882071 (Version 1)
Quarter: 2014Q1

REPORT INFORMATION
  Report Type: Spontaneous
  Country: CH (occurrence: CH)
  Receive Date: 20140207
  Receipt Date: 20140207
  Transmission Date: 20141002
  Serious: Yes (Hospitalization)
  Sender: FDA-Public Use
  Company Number: CH-BAYER-2014-018695

PATIENT
  Age: 65 Year
  Sex: Female

DRUGS (2)
  1. STIVARGA [Suspect]
     Indication: RECTOSIGMOID CANCER
     Dosage: 160 MG, QD
     Route: 048
     Dates: start: 20140109, end: 20140110
  2. FRAGMIN [Concomitant]
     Indication: EMBOLISM VENOUS
     Dosage: 15000 IU, QD
     Route: 058

REACTIONS (4)
  - Confusional state [Recovered/Resolved]
  - Amnesia [Not Recovered/Not Resolved]
  - Hallucination, visual [Recovered/Resolved]
  - Hypertension [Recovering/Resolving]
